FAERS Safety Report 5925406-0 (Version None)
Quarter: 2008Q4

REPORT INFORMATION
  Report Type: 
  Country: None (occurrence: None)
  Receive Date: 20081020
  Receipt Date: 20081020
  Transmission Date: 20090506
  Serious: Yes (Disabling)
  Sender: FDA-Public Use
  Company Number: None

PATIENT
  Age: 14 Year
  Sex: Male
  Weight: 70.7611 kg

DRUGS (2)
  1. MINOCYCLINE 100 MG GENERIC FOR MINOCIN [Suspect]
     Indication: ACNE
     Dosage: 100 MG  1 X PER DAY PO
     Route: 048
     Dates: start: 20080726, end: 20080912
  2. MINOCYCLINE 100 MG CAPSULE GENERIC FOR MINOCIN [Suspect]
     Dosage: 100 MG 2X PER DAY PO
     Route: 048
     Dates: start: 20080913, end: 20081016

REACTIONS (1)
  - TOOTH DISCOLOURATION [None]
